FAERS Safety Report 21633690 (Version 2)
Quarter: 2023Q1

REPORT INFORMATION
  Report Type: Spontaneous
  Country: US (occurrence: US)
  Receive Date: 20221123
  Receipt Date: 20230105
  Transmission Date: 20230418
  Serious: Yes (Hospitalization, Other)
  Sender: FDA-Public Use
  Company Number: US-ELI_LILLY_AND_COMPANY-US202211008578

PATIENT
  Age: 73 Year
  Sex: Female

DRUGS (4)
  1. TADALAFIL [Suspect]
     Active Substance: TADALAFIL
     Indication: Pulmonary arterial hypertension
     Dosage: UNK UNK, UNKNOWN
     Route: 065
  2. TYVASO [Suspect]
     Active Substance: TREPROSTINIL
     Indication: Pulmonary arterial hypertension
     Dosage: 48 UG, QID
     Route: 065
     Dates: start: 20221026
  3. TYVASO [Suspect]
     Active Substance: TREPROSTINIL
     Dosage: 32 UG, QID
     Route: 065
  4. TYVASO [Suspect]
     Active Substance: TREPROSTINIL
     Indication: Pulmonary arterial hypertension
     Dosage: 32 UG, QID
     Dates: start: 20221005

REACTIONS (10)
  - Respiratory failure [Not Recovered/Not Resolved]
  - Mitral valve incompetence [Not Recovered/Not Resolved]
  - Tricuspid valve incompetence [Not Recovered/Not Resolved]
  - Head injury [Unknown]
  - Fall [Recovered/Resolved]
  - Sleep terror [Recovered/Resolved]
  - Confusional state [Recovered/Resolved]
  - Flatulence [Recovered/Resolved]
  - Somnolence [Recovered/Resolved]
  - Dyspepsia [Recovered/Resolved]

NARRATIVE: CASE EVENT DATE: 20221001
